FAERS Safety Report 12399685 (Version 3)
Quarter: 2016Q2

REPORT INFORMATION
  Report Type: Other
  Country: JP (occurrence: JP)
  Receive Date: 20160524
  Receipt Date: 20160613
  Transmission Date: 20160815
  Serious: Yes (Hospitalization)
  Sender: FDA-Public Use
  Company Number: JP-DSJP-DSJ-2016-116846

PATIENT

DRUGS (5)
  1. AMLODIPINE [Concomitant]
     Active Substance: AMLODIPINE BESYLATE
     Indication: HYPERTENSION
     Dosage: 5 MG, QD
     Route: 048
  2. TENELIA TABLETS 20MG [Concomitant]
     Indication: DIABETES MELLITUS
     Dosage: 20 MG, QD
     Route: 048
  3. LIVACT                             /00847901/ [Concomitant]
     Active Substance: ISOLEUCINE\LEUCINE\VALINE
     Indication: HYPOALBUMINAEMIA
     Dosage: 4.15 G, TID
     Route: 048
  4. OLMETEC [Suspect]
     Active Substance: OLMESARTAN MEDOXOMIL
     Indication: HYPERTENSION
     Dosage: 20 MG, QD
     Route: 048
     Dates: end: 20160502
  5. SENNA [Concomitant]
     Active Substance: SENNA LEAF\SENNOSIDES\SENNOSIDES A AND B
     Indication: CONSTIPATION
     Dosage: 1 G, QD
     Route: 048

REACTIONS (1)
  - Hyponatraemia [Recovered/Resolved]

NARRATIVE: CASE EVENT DATE: 20160418
